FAERS Safety Report 15740504 (Version 3)
Quarter: 2019Q1

REPORT INFORMATION
  Report Type: Report from Study
  Country: US (occurrence: US)
  Receive Date: 20181219
  Receipt Date: 20190304
  Transmission Date: 20190417
  Serious: Yes (Other)
  Sender: FDA-Public Use
  Company Number: PHEH2018US052571

PATIENT
  Sex: Female

DRUGS (1)
  1. COSENTYX [Suspect]
     Active Substance: SECUKINUMAB
     Indication: PSORIATIC ARTHROPATHY
     Dosage: 150 MG, QMO
     Route: 058

REACTIONS (7)
  - Cellulitis [Unknown]
  - Carbohydrate intolerance [Unknown]
  - Arthropathy [Unknown]
  - Staphylococcal infection [Unknown]
  - Weight loss poor [Unknown]
  - Psoriasis [Unknown]
  - Drug ineffective [Unknown]
